FAERS Safety Report 24540106 (Version 1)
Quarter: 2024Q4

REPORT INFORMATION
  Report Type: Spontaneous
  Country: US (occurrence: US)
  Receive Date: 20241023
  Receipt Date: 20241023
  Transmission Date: 20250114
  Serious: No
  Sender: BRISTOL-MYERS SQUIBB COMPANY
  Company Number: US-BRISTOL-MYERS SQUIBB COMPANY-2024-166604

PATIENT
  Age: 85 Year
  Sex: Female

DRUGS (3)
  1. REVLIMID [Suspect]
     Active Substance: LENALIDOMIDE
     Indication: Myelodysplastic syndrome
     Dosage: DAILY FOR 28 DAYS
     Route: 048
     Dates: start: 20240730
  2. REVLIMID [Suspect]
     Active Substance: LENALIDOMIDE
     Dosage: DAILY FOR 28 DAYS
     Route: 048
     Dates: start: 20240909
  3. REVLIMID [Suspect]
     Active Substance: LENALIDOMIDE
     Dosage: DAILY FOR 28 DAYS
     Route: 048
     Dates: start: 20240730

REACTIONS (9)
  - Pruritus [Unknown]
  - Decreased appetite [Unknown]
  - Dysgeusia [Recovering/Resolving]
  - Bone pain [Unknown]
  - Muscle spasms [Unknown]
  - Fatigue [Recovering/Resolving]
  - Asthenia [Unknown]
  - Weight decreased [Unknown]
  - Off label use [Unknown]
